APPROVED DRUG PRODUCT: HALCION
Active Ingredient: TRIAZOLAM
Strength: 0.5MG
Dosage Form/Route: TABLET;ORAL
Application: N017892 | Product #002
Applicant: PFIZER INC
Approved: Nov 15, 1982 | RLD: No | RS: No | Type: DISCN